FAERS Safety Report 24606076 (Version 3)
Quarter: 2025Q3

REPORT INFORMATION
  Report Type: Report from Study
  Country: US (occurrence: US)
  Receive Date: 20241112
  Receipt Date: 20250819
  Transmission Date: 20251021
  Serious: Yes (Other)
  Sender: ABBVIE
  Company Number: US-ABBVIE-5995122

PATIENT
  Age: 66 Year
  Sex: Female
  Weight: 97.068 kg

DRUGS (1)
  1. SKYRIZI [Suspect]
     Active Substance: RISANKIZUMAB-RZAA
     Indication: Psoriasis
     Dosage: FORM STRENGTH 150 MILLIGRAM, DOSE FORM: SOLUTION FOR INJECTION IN PRE-FILLED PEN.
     Route: 058
     Dates: start: 20230316

REACTIONS (6)
  - Breast cancer female [Recovering/Resolving]
  - Psoriasis [Not Recovered/Not Resolved]
  - Paraesthesia [Unknown]
  - Hypoaesthesia [Unknown]
  - Neuropathy peripheral [Unknown]
  - Burning sensation [Unknown]

NARRATIVE: CASE EVENT DATE: 20240826
